FAERS Safety Report 10597671 (Version 1)
Quarter: 2014Q4

REPORT INFORMATION
  Report Type: Spontaneous
  Country: US (occurrence: None)
  Receive Date: 20141119
  Receipt Date: 20141119
  Transmission Date: 20150529
  Serious: Yes (Hospitalization)
  Sender: FDA-Public Use
  Company Number: IPC201411-000604

PATIENT
  Age: 59 Year
  Sex: Female

DRUGS (14)
  1. ZOLPIDEM TARTRATE (ZOLPIDEM TARTRATE) (ZOLPIDEM TARTRATE) [Suspect]
     Active Substance: ZOLPIDEM TARTRATE
  2. ASPIRIN (ASPIRIN) (ASPIRIN) [Suspect]
     Active Substance: ASPIRIN
  3. HYDROCODONE ACETAMINOPHEN [Suspect]
     Active Substance: ACETAMINOPHEN\HYDROCODONE BITARTRATE
  4. TRIMETHOPRIM-SULFAMETHOXAZOLE (TRIMETHOPRIM-SULFAMETHOXAZOLE) (TRIMETHOPRIM-SULFAMETHOXAZOLE) [Suspect]
     Active Substance: SULFAMETHOXAZOLE\TRIMETHOPRIM
     Indication: URINARY TRACT INFECTION
  5. FENTANYL (FENTANYL) (FENTANYL) [Suspect]
     Active Substance: FENTANYL
  6. VENLAFAXINE [Suspect]
     Active Substance: VENLAFAXINE HYDROCHLORIDE
  7. ACETAMINOPHEN AND CODEINE [Suspect]
     Active Substance: ACETAMINOPHEN\CODEINE PHOSPHATE
  8. DILTIAZEM (DILTIAZEM) (DILTIAZEM) [Suspect]
     Active Substance: DILTIAZEM
  9. SIMVASTATIN (SIMVASTATIN) (SIMVASTATIN) [Suspect]
     Active Substance: SIMVASTATIN
  10. HYDROCHLOROTHIAZIDE (HYDROCHLOROTHIAZIDE) (HYDROCHLOROTHIAZIDE) [Suspect]
     Active Substance: HYDROCHLOROTHIAZIDE
  11. PHENAZOPYRIDINE (PHENAZOPYRIDINE) (PHENAZOPYRIDINE) [Suspect]
     Active Substance: PHENAZOPYRIDINE
     Dosage: 4 TIMES A DAY
  12. LAMOTRIGINE (LAMOTRIGINE) (LAMOTRIGINE) [Suspect]
     Active Substance: LAMOTRIGINE
  13. OLANZAPINE (OLANZAPINE) (OLANZAPINE) [Suspect]
     Active Substance: OLANZAPINE
  14. AMITRIPTYLINE (AMITRIPTYLINE) (AMITRIPTYLINE) [Suspect]
     Active Substance: AMITRIPTYLINE

REACTIONS (3)
  - Methaemoglobinaemia [None]
  - Abdominal pain [None]
  - Troponin increased [None]
